FAERS Safety Report 23955928 (Version 1)
Quarter: 2024Q2

REPORT INFORMATION
  Report Type: Spontaneous
  Country: US (occurrence: US)
  Receive Date: 20240610
  Receipt Date: 20240610
  Transmission Date: 20240716
  Serious: Yes (Other)
  Sender: FDA-Public Use
  Company Number: US-002147023-NVSC2024US119949

PATIENT
  Sex: Female

DRUGS (2)
  1. MEKINIST [Suspect]
     Active Substance: TRAMETINIB DIMETHYL SULFOXIDE
     Indication: Metastatic lymphoma
     Dosage: 2 MG, QD
     Route: 048
     Dates: start: 202404
  2. TAFINLAR [Suspect]
     Active Substance: DABRAFENIB MESYLATE
     Indication: Metastatic lymphoma
     Dosage: 150 MG, BID
     Route: 048
     Dates: start: 202404

REACTIONS (2)
  - Pain [Unknown]
  - Product use in unapproved indication [Unknown]
